FAERS Safety Report 20609884 (Version 9)
Quarter: 2022Q3

REPORT INFORMATION
  Report Type: Report from Study
  Country: US (occurrence: US)
  Receive Date: 20220318
  Receipt Date: 20220816
  Transmission Date: 20221027
  Serious: No
  Sender: FDA-Public Use
  Company Number: US-NOVARTISTESTPH-NVSC2022US061997

PATIENT
  Sex: Female

DRUGS (4)
  1. COSENTYX [Suspect]
     Active Substance: SECUKINUMAB
     Indication: Psoriatic arthropathy
     Dosage: 150 MG, QMO
     Route: 058
  2. COSENTYX [Suspect]
     Active Substance: SECUKINUMAB
     Indication: Psoriasis
     Dosage: UNK
     Route: 065
     Dates: start: 20220218
  3. COSENTYX [Suspect]
     Active Substance: SECUKINUMAB
     Indication: Rheumatoid arthritis
     Dosage: 300 MG
     Route: 065
  4. COSENTYX [Suspect]
     Active Substance: SECUKINUMAB
     Indication: Ankylosing spondylitis

REACTIONS (14)
  - Hypoacusis [Unknown]
  - Ear discomfort [Unknown]
  - Anxiety [Unknown]
  - Alopecia [Unknown]
  - Pustular psoriasis [Not Recovered/Not Resolved]
  - Hidradenitis [Unknown]
  - Eczema [Unknown]
  - Haematuria [Unknown]
  - Psoriasis [Unknown]
  - Rash [Unknown]
  - Back pain [Unknown]
  - Neck pain [Unknown]
  - Product use in unapproved indication [Unknown]
  - Drug ineffective [Unknown]
